FAERS Safety Report 10799483 (Version 1)
Quarter: 2015Q1

REPORT INFORMATION
  Report Type: Report from Study
  Country: US (occurrence: US)
  Receive Date: 20150216
  Receipt Date: 20150216
  Transmission Date: 20150721
  Serious: Yes (Hospitalization, Other)
  Sender: FDA-Public Use
  Company Number: US-ABBVIE-14K-163-1236449-00

PATIENT
  Age: 18 Year
  Sex: Female

DRUGS (8)
  1. HUMIRA [Suspect]
     Active Substance: ADALIMUMAB
     Indication: COLITIS ULCERATIVE
     Dates: start: 20140320, end: 20140320
  2. HUMIRA [Suspect]
     Active Substance: ADALIMUMAB
     Dates: start: 20140403, end: 20140403
  3. DICLAZINE [Concomitant]
     Indication: ABDOMINAL PAIN UPPER
  4. TRAMADOL [Concomitant]
     Active Substance: TRAMADOL
     Indication: PAIN
     Route: 048
  5. HUMIRA [Suspect]
     Active Substance: ADALIMUMAB
     Dates: end: 20140417
  6. HUMIRA [Suspect]
     Active Substance: ADALIMUMAB
     Dates: start: 20140513, end: 20140519
  7. ZOFRAN [Concomitant]
     Active Substance: ONDANSETRON HYDROCHLORIDE
     Indication: NAUSEA
  8. IRON [Concomitant]
     Active Substance: IRON
     Indication: PRODUCT USED FOR UNKNOWN INDICATION
     Dosage: DAILY

REACTIONS (10)
  - Haematochezia [Unknown]
  - Vomiting [Unknown]
  - Vomiting [Not Recovered/Not Resolved]
  - Diarrhoea [Not Recovered/Not Resolved]
  - Heart rate increased [Unknown]
  - Abdominal pain upper [Unknown]
  - Clostridium difficile infection [Not Recovered/Not Resolved]
  - Deep vein thrombosis [Not Recovered/Not Resolved]
  - Pulmonary embolism [Not Recovered/Not Resolved]
  - Pain [Unknown]

NARRATIVE: CASE EVENT DATE: 201404
